FAERS Safety Report 4339498-6 (Version None)
Quarter: 2004Q2

REPORT INFORMATION
  Report Type: 
  Country: None (occurrence: None)
  Receive Date: 20040415
  Receipt Date: 20040407
  Transmission Date: 20050107
  Serious: Yes (Hospitalization)
  Sender: FDA-Public Use
  Company Number: GB-ROCHE-363900

PATIENT
  Age: 48 Year
  Sex: Male
  Weight: 93 kg

DRUGS (10)
  1. MYCOPHENOLATE MOFETIL [Suspect]
     Route: 048
     Dates: start: 20031015
  2. CYCLOSPORINE [Suspect]
     Route: 048
     Dates: start: 20031015
  3. PREDNISOLONE [Suspect]
     Route: 048
     Dates: start: 20031015
  4. ASPIRIN [Concomitant]
  5. COTRIM [Concomitant]
  6. LANSOPRAZOLE [Concomitant]
  7. NIFEDIPINE [Concomitant]
  8. ATENOLOL [Concomitant]
  9. FUROSEMIDE [Concomitant]
  10. ACETAMINOPHEN [Concomitant]

REACTIONS (6)
  - FEELING ABNORMAL [None]
  - FEELING HOT [None]
  - GASTROENTERITIS [None]
  - OEDEMA PERIPHERAL [None]
  - PAIN IN EXTREMITY [None]
  - SEPSIS [None]
